FAERS Safety Report 17653263 (Version 3)
Quarter: 2023Q1

REPORT INFORMATION
  Report Type: Report from Study
  Country: US (occurrence: US)
  Receive Date: 20200409
  Receipt Date: 20230130
  Transmission Date: 20230418
  Serious: Yes (Other)
  Sender: FDA-Public Use
  Company Number: US-NOVARTISPH-NVSC2020US079339

PATIENT
  Age: 78 Year
  Sex: Female

DRUGS (1)
  1. BEOVU [Suspect]
     Active Substance: BROLUCIZUMAB-DBLL
     Indication: Neovascular age-related macular degeneration
     Dosage: 6 MG, ONE SINGLE DOSE
     Route: 047
     Dates: start: 20191120

REACTIONS (3)
  - Vitritis [Not Recovered/Not Resolved]
  - Blindness [Unknown]
  - Eye inflammation [Unknown]

NARRATIVE: CASE EVENT DATE: 20200313
